FAERS Safety Report 4673641-4 (Version None)
Quarter: 2005Q2

REPORT INFORMATION
  Report Type: 
  Country: None (occurrence: None)
  Receive Date: 20050525
  Receipt Date: 20050510
  Transmission Date: 20051028
  Serious: Yes (Other)
  Sender: FDA-Public Use
  Company Number: 2005UW07298

PATIENT
  Age: 61 Year
  Sex: Female

DRUGS (7)
  1. MERREM [Suspect]
     Indication: INFECTION
     Route: 042
     Dates: end: 20050505
  2. BLOOD TRANSFUSION [Concomitant]
  3. VANCOMYCIN [Concomitant]
     Dates: start: 20050508
  4. LEVAQUIN [Concomitant]
  5. CEPHALOSPORIN [Concomitant]
  6. INSULIN [Concomitant]
  7. BLOOD PRESSURE MEDICATIONS [Concomitant]

REACTIONS (6)
  - COMA [None]
  - FACE OEDEMA [None]
  - OEDEMA [None]
  - PYREXIA [None]
  - RASH [None]
  - URTICARIA [None]
